FAERS Safety Report 10100034 (Version 2)
Quarter: 2014Q2

REPORT INFORMATION
  Report Type: Report from Study
  Country: FR (occurrence: FR)
  Receive Date: 20140423
  Receipt Date: 20140520
  Transmission Date: 20141212
  Serious: Yes (Other)
  Sender: FDA-Public Use
  Company Number: FR-JNJFOC-20140410430

PATIENT
  Age: 47 Year
  Sex: Male
  Weight: 95 kg

DRUGS (4)
  1. SIMEPREVIR [Suspect]
     Indication: HEPATITIS C
     Dosage: PLANNED FOR 12 WEEKS AND LAST ADMINISTRATION DATE 20-APR-2014
     Route: 048
     Dates: start: 20140127
  2. RIBAVIRIN [Suspect]
     Indication: HEPATITIS C
     Route: 065
     Dates: start: 20140127
  3. PEGINTERFERON ALFA [Suspect]
     Indication: HEPATITIS C
     Route: 065
     Dates: start: 20140127, end: 20140404
  4. SOVALDI [Suspect]
     Indication: HEPATITIS C
     Route: 065
     Dates: start: 20140404

REACTIONS (4)
  - Platelet count decreased [Unknown]
  - Neutrophil count decreased [Unknown]
  - Drug ineffective [Unknown]
  - Off label use [Unknown]
